FAERS Safety Report 20119046 (Version 3)
Quarter: 2022Q3

REPORT INFORMATION
  Report Type: Report from Study
  Country: CO (occurrence: CO)
  Receive Date: 20211126
  Receipt Date: 20220707
  Transmission Date: 20221027
  Serious: Yes (Hospitalization)
  Sender: FDA-Public Use
  Company Number: CO-ABBVIE-21K-036-4175027-00

PATIENT
  Age: 55 Year
  Sex: Male
  Weight: 69 kg

DRUGS (5)
  1. HUMIRA [Suspect]
     Active Substance: ADALIMUMAB
     Indication: Ankylosing spondylitis
     Route: 058
     Dates: start: 20170314
  2. HUMIRA [Suspect]
     Active Substance: ADALIMUMAB
     Indication: Ankylosing spondylitis
     Route: 058
     Dates: end: 20211027
  3. HUMIRA [Suspect]
     Active Substance: ADALIMUMAB
     Route: 058
  4. FOLIC ACID [Concomitant]
     Active Substance: FOLIC ACID
     Indication: Adjuvant therapy
     Route: 048
  5. METHOTREXATE [Concomitant]
     Active Substance: METHOTREXATE
     Indication: Product used for unknown indication

REACTIONS (10)
  - Tuberculin test positive [Recovered/Resolved]
  - Lung disorder [Not Recovered/Not Resolved]
  - Costochondritis [Not Recovered/Not Resolved]
  - Influenza [Not Recovered/Not Resolved]
  - Pain in extremity [Not Recovered/Not Resolved]
  - Arthralgia [Not Recovered/Not Resolved]
  - Malaise [Recovered/Resolved]
  - Discouragement [Recovered/Resolved]
  - Influenza like illness [Recovered/Resolved]
  - Cough [Recovered/Resolved]

NARRATIVE: CASE EVENT DATE: 20211101
